FAERS Safety Report 10900598 (Version 1)
Quarter: 2015Q1

REPORT INFORMATION
  Report Type: Report from Study
  Country: CA (occurrence: CA)
  Receive Date: 20150310
  Receipt Date: 20150310
  Transmission Date: 20150721
  Serious: Yes (Hospitalization, Other)
  Sender: FDA-Public Use
  Company Number: CA-AMGEN-CANSL2015020195

PATIENT
  Age: 71 Year
  Sex: Female

DRUGS (1)
  1. PROLIA [Suspect]
     Active Substance: DENOSUMAB
     Indication: PRODUCT USED FOR UNKNOWN INDICATION
     Dosage: UNK
     Route: 065
     Dates: start: 20110208

REACTIONS (8)
  - Joint swelling [Unknown]
  - Non-Hodgkin^s lymphoma [Recovering/Resolving]
  - Nephrectomy [Unknown]
  - Meniscus injury [Unknown]
  - Arthralgia [Recovered/Resolved]
  - Fall [Unknown]
  - Hip fracture [Unknown]
  - Clavicle fracture [Unknown]

NARRATIVE: CASE EVENT DATE: 201102
